FAERS Safety Report 8011045-7 (Version None)
Quarter: 2011Q4

REPORT INFORMATION
  Report Type: 
  Country: None (occurrence: None)
  Receive Date: 20111228
  Receipt Date: 20111215
  Transmission Date: 20120403
  Serious: Yes (Life-Threatening, Hospitalization)
  Sender: FDA-Public Use
  Company Number: US-ELI_LILLY_AND_COMPANY-US201112005477

PATIENT
  Sex: Female

DRUGS (2)
  1. CYMBALTA [Suspect]
     Indication: DEPRESSION
     Dosage: 20 MG, TID
     Dates: start: 20040101, end: 20040101
  2. MAO INHIBITORS [Concomitant]
     Dosage: UNK
     Dates: start: 19900101

REACTIONS (4)
  - CARDIAC ARREST [None]
  - DIZZINESS [None]
  - AMNESIA [None]
  - OFF LABEL USE [None]
